FAERS Safety Report 20003213 (Version 1)
Quarter: 2021Q4

REPORT INFORMATION
  Report Type: Spontaneous
  Country: US (occurrence: US)
  Receive Date: 20211027
  Receipt Date: 20211027
  Transmission Date: 20220303
  Serious: Yes (Hospitalization, Other)
  Sender: FDA-Public Use
  Company Number: US-MYLANLABS-2021M1076461

PATIENT
  Age: 80 Year
  Sex: Female

DRUGS (2)
  1. DEXAMETHASONE [Suspect]
     Active Substance: DEXAMETHASONE
     Indication: COVID-19
     Dosage: UNK
     Route: 065
  2. XARELTO [Concomitant]
     Active Substance: RIVAROXABAN
     Indication: COVID-19
     Dosage: UNK
     Route: 065

REACTIONS (4)
  - Nocardiosis [Unknown]
  - Brain abscess [Unknown]
  - Herpes zoster [Unknown]
  - Off label use [Unknown]
